FAERS Safety Report 18714563 (Version 1)
Quarter: 2021Q1

REPORT INFORMATION
  Report Type: Report from Study
  Country: US (occurrence: US)
  Receive Date: 20210108
  Receipt Date: 20210108
  Transmission Date: 20210419
  Serious: No
  Sender: FDA-Public Use
  Company Number: US-ACADIA PHARMACEUTICALS INC.-ACA-2020-PIM-004049

PATIENT
  Sex: Female

DRUGS (8)
  1. CLONAZEPAM. [Concomitant]
     Active Substance: CLONAZEPAM
  2. FLUDROCORTISONE [Concomitant]
     Active Substance: FLUDROCORTISONE
  3. FERROUS SULFATE. [Concomitant]
     Active Substance: FERROUS SULFATE
  4. RISPERIDONE. [Concomitant]
     Active Substance: RISPERIDONE
  5. MEMANTINE. [Concomitant]
     Active Substance: MEMANTINE
  6. NUPLAZID [Suspect]
     Active Substance: PIMAVANSERIN TARTRATE
     Indication: DEMENTIA
  7. NITROFURANTOIN. [Concomitant]
     Active Substance: NITROFURANTOIN
  8. NUPLAZID [Suspect]
     Active Substance: PIMAVANSERIN TARTRATE
     Indication: PARKINSON^S DISEASE
     Dosage: 34 MILLIGRAM, QD
     Route: 048
     Dates: start: 20201029, end: 202012

REACTIONS (3)
  - Speech disorder [Recovered/Resolved]
  - Coordination abnormal [Recovered/Resolved]
  - Balance disorder [Recovered/Resolved]
